FAERS Safety Report 5907375-2 (Version None)
Quarter: 2008Q4

REPORT INFORMATION
  Report Type: 
  Country: None (occurrence: None)
  Receive Date: 20081003
  Receipt Date: 20080925
  Transmission Date: 20090506
  Serious: Yes (Hospitalization)
  Sender: FDA-Public Use
  Company Number: NL-PURDUE-GBR_2008_0004468

PATIENT
  Age: 74 Year
  Sex: Male
  Weight: 90 kg

DRUGS (5)
  1. OXYCONTIN [Suspect]
     Indication: DRUG USE FOR UNKNOWN INDICATION
     Dosage: 10 MG, BID
     Route: 065
     Dates: start: 20080825, end: 20080916
  2. PRAVASTATINE                       /00880401/ [Concomitant]
     Indication: ARTERIOSCLEROSIS
     Dosage: 40 UNK, UNK
     Route: 048
     Dates: start: 20040101
  3. CLOPIDOGREL                        /01220702/ [Concomitant]
     Indication: MYOCARDIAL INFARCTION
     Dosage: 80 UNK, UNK
     Route: 048
     Dates: start: 20070101
  4. ASCAL                              /00002702/ [Concomitant]
     Indication: MYOCARDIAL INFARCTION
     Dosage: 80 UNK, UNK
     Route: 048
     Dates: start: 20070101
  5. METOPROLOL TARTRATE [Concomitant]
     Indication: HYPERTENSION
     Dosage: 50 UNK, UNK
     Route: 048
     Dates: start: 20040101

REACTIONS (1)
  - UMBILICAL HERNIA REPAIR [None]
